FAERS Safety Report 25669941 (Version 1)
Quarter: 2025Q3

REPORT INFORMATION
  Report Type: Spontaneous
  Country: US (occurrence: US)
  Receive Date: 20250812
  Receipt Date: 20250812
  Transmission Date: 20251021
  Serious: No
  Sender: GALPHARM INTERNATIONAL
  Company Number: US-PERRIGO-25US004660

PATIENT

DRUGS (1)
  1. NICOTINE POLACRILEX [Suspect]
     Active Substance: NICOTINE
     Indication: Product used for unknown indication
     Route: 002

REACTIONS (5)
  - Salivary hypersecretion [Unknown]
  - Hypersensitivity [Unknown]
  - Nausea [Unknown]
  - Hiccups [Unknown]
  - Drug ineffective [Unknown]
